FAERS Safety Report 24838111 (Version 2)
Quarter: 2025Q1

REPORT INFORMATION
  Report Type: Spontaneous
  Country: US (occurrence: US)
  Receive Date: 20250113
  Receipt Date: 20250303
  Transmission Date: 20250409
  Serious: Yes (Death)
  Sender: PFIZER
  Company Number: US-PFIZER INC-202400237804

PATIENT
  Age: 54 Year
  Sex: Female

DRUGS (2)
  1. TIVDAK [Suspect]
     Active Substance: TISOTUMAB VEDOTIN-TFTV
     Indication: Cervix carcinoma stage IV
     Dosage: 139MG INFUSION, EVERY 3 WEEKS
     Dates: start: 20240405, end: 20240702
  2. TIVDAK [Suspect]
     Active Substance: TISOTUMAB VEDOTIN-TFTV
     Dosage: 141MG EVERY 21 DAYS

REACTIONS (1)
  - Death [Fatal]
